FAERS Safety Report 8402589-4 (Version None)
Quarter: 2012Q2

REPORT INFORMATION
  Report Type: 
  Country: None (occurrence: None)
  Receive Date: 20120323
  Receipt Date: 20101231
  Transmission Date: 20120825
  Serious: Yes (Hospitalization, Other)
  Sender: FDA-Public Use
  Company Number: 163-21880-10100593

PATIENT
  Age: 79 Year
  Sex: Male

DRUGS (1)
  1. REVLIMID [Suspect]
     Indication: MYELODYSPLASTIC SYNDROME
     Dosage: 10 MG, 1 IN 1 D, PO
     Route: 048
     Dates: start: 20100923, end: 20101012

REACTIONS (7)
  - PULMONARY EMBOLISM [None]
  - DEEP VEIN THROMBOSIS [None]
  - PNEUMONIA [None]
  - PLATELET COUNT DECREASED [None]
  - THROMBOPHLEBITIS SUPERFICIAL [None]
  - ANAEMIA [None]
  - NEUTROPHIL COUNT DECREASED [None]
